FAERS Safety Report 7799032-5 (Version None)
Quarter: 2011Q4

REPORT INFORMATION
  Report Type: 
  Country: None (occurrence: None)
  Receive Date: 20111005
  Receipt Date: 20111005
  Transmission Date: 20120403
  Serious: No
  Sender: FDA-Public Use
  Company Number: None

PATIENT
  Age: 39 Year
  Sex: Female

DRUGS (1)
  1. CYCLAFEM 1/35 [Suspect]
     Indication: CONTRACEPTION
     Dosage: TAKE 1 TABLET ONCE DAILY AS DIRECTED FOR BIRTH CONTROL  MORE THAN A YEAR

REACTIONS (2)
  - MALAISE [None]
  - AMENORRHOEA [None]
